FAERS Safety Report 11440705 (Version 1)
Quarter: 2015Q3

REPORT INFORMATION
  Report Type: Spontaneous
  Country: US (occurrence: US)
  Receive Date: 20150901
  Receipt Date: 20150901
  Transmission Date: 20151125
  Serious: No
  Sender: FDA-Public Use
  Company Number: US-ROCHE-1098136

PATIENT
  Sex: Female

DRUGS (2)
  1. RIBAVIRIN. [Suspect]
     Active Substance: RIBAVIRIN
     Indication: CHRONIC HEPATITIS C
     Dosage: DIVIDED DOSES
     Route: 048
     Dates: start: 20120518
  2. PEGASYS [Suspect]
     Active Substance: PEGINTERFERON ALFA-2A
     Indication: CHRONIC HEPATITIS C
     Route: 058
     Dates: start: 20120518

REACTIONS (14)
  - Fatigue [Unknown]
  - Blood pressure decreased [Unknown]
  - Impaired work ability [Unknown]
  - White blood cell count decreased [Unknown]
  - Platelet count decreased [Unknown]
  - Cognitive disorder [Unknown]
  - Depression [Unknown]
  - Lip blister [Unknown]
  - Plicated tongue [Unknown]
  - Swollen tongue [Unknown]
  - Dyspnoea [Unknown]
  - Vertigo [Unknown]
  - Oropharyngeal pain [Unknown]
  - Cough [Unknown]
